FAERS Safety Report 8894334 (Version 4)
Quarter: 2013Q1

REPORT INFORMATION
  Report Type: Spontaneous
  Country: US (occurrence: US)
  Receive Date: 20121108
  Receipt Date: 20130128
  Transmission Date: 20140127
  Serious: Yes (Hospitalization)
  Sender: FDA-Public Use
  Company Number: US-BIOGENIDEC-2012BI049147

PATIENT
  Age: 44 Year
  Sex: Male

DRUGS (20)
  1. TYSABRI [Suspect]
     Indication: MULTIPLE SCLEROSIS
     Route: 042
     Dates: start: 20111212
  2. FLONASE [Concomitant]
  3. BACLOFEN [Concomitant]
  4. ATORVASTATIN [Concomitant]
  5. BENADRYL [Concomitant]
  6. SERTRALINE [Concomitant]
  7. TRILEPTAL [Concomitant]
  8. DONEPEZIL [Concomitant]
  9. VICODIN [Concomitant]
  10. TRAZADONE [Concomitant]
  11. PLAVIX [Concomitant]
  12. ZETIA [Concomitant]
  13. METOPROLOL [Concomitant]
  14. ASPIRIN [Concomitant]
  15. WELCHOL [Concomitant]
  16. COMBIVENT [Concomitant]
  17. NITRO-DUR [Concomitant]
  18. CALCIUM CARBONATE [Concomitant]
  19. VITAMIN D3 [Concomitant]
  20. METHYLIN [Concomitant]

REACTIONS (4)
  - Pneumonia [Recovered/Resolved]
  - Muscle spasms [Unknown]
  - Urinary tract infection [Unknown]
  - Osteoarthritis [Not Recovered/Not Resolved]
